FAERS Safety Report 12606376 (Version 1)
Quarter: 2016Q3

REPORT INFORMATION
  Report Type: Spontaneous
  Country: US (occurrence: None)
  Receive Date: 20160728
  Receipt Date: 20160728
  Transmission Date: 20161109
  Serious: No
  Sender: FDA-Public Use
  Company Number: None

PATIENT
  Age: 51 Year
  Sex: Female
  Weight: 70.31 kg

DRUGS (12)
  1. LOVASTATIN. [Concomitant]
     Active Substance: LOVASTATIN
  2. LOPRESSOR [Concomitant]
     Active Substance: METOPROLOL TARTRATE
  3. LEXAPRO [Concomitant]
     Active Substance: ESCITALOPRAM OXALATE
  4. GABAPENTIN. [Concomitant]
     Active Substance: GABAPENTIN
  5. VENTOLIN [Concomitant]
     Active Substance: ALBUTEROL SULFATE
  6. ALBUTEROL. [Concomitant]
     Active Substance: ALBUTEROL
  7. AMPHETAMINE SALT [Concomitant]
     Active Substance: AMPHETAMINE ASPARTATE\AMPHETAMINE SULFATE\DEXTROAMPHETAMINE SACCHARATE\DEXTROAMPHETAMINE SULFATE
  8. KLONOPIN [Concomitant]
     Active Substance: CLONAZEPAM
  9. SODIUM CHLORIDE. [Concomitant]
     Active Substance: SODIUM CHLORIDE
  10. NITRO [Concomitant]
     Active Substance: NITROGLYCERIN
  11. ABSORBINE VETINARY LINIMENT [Suspect]
     Active Substance: MENTHOL
     Indication: PERIPHERAL SWELLING
     Dosage: 3X DAY 1X BEDTIME SKIN(LEGS)
     Route: 061
     Dates: start: 20160617, end: 20160617
  12. ABSORBINE VETINARY LINIMENT [Suspect]
     Active Substance: MENTHOL
     Indication: STAPHYLOCOCCAL INFECTION
     Dosage: 3X DAY 1X BEDTIME SKIN(LEGS)
     Route: 061
     Dates: start: 20160617, end: 20160617

REACTIONS (4)
  - Drug dispensing error [None]
  - Product selection error [None]
  - Burning sensation [None]
  - Drug administration error [None]

NARRATIVE: CASE EVENT DATE: 20160617
